FAERS Safety Report 7269375-2 (Version None)
Quarter: 2011Q1

REPORT INFORMATION
  Report Type: 
  Country: None (occurrence: None)
  Receive Date: 20110202
  Receipt Date: 20110127
  Transmission Date: 20110831
  Serious: Yes (Hospitalization)
  Sender: FDA-Public Use
  Company Number: US-BRISTOL-MYERS SQUIBB COMPANY-15506959

PATIENT
  Age: 11 Year
  Sex: Male

DRUGS (1)
  1. AMPHOTERICIN B FOR INJECTION [Suspect]
     Indication: ENDOPHTHALMITIS
     Dosage: 1 D.F:5MCG/0.1ML ACTAULLY CONTAINED 500 MCG/0.1ML
     Route: 031

REACTIONS (4)
  - INCORRECT DOSE ADMINISTERED [None]
  - RETINAL DETACHMENT [None]
  - PANOPHTHALMITIS [None]
  - CATARACT [None]
